FAERS Safety Report 21404924 (Version 1)
Quarter: 2022Q4

REPORT INFORMATION
  Report Type: Spontaneous
  Country: FR (occurrence: FR)
  Receive Date: 20221003
  Receipt Date: 20221003
  Transmission Date: 20230113
  Serious: Yes (Hospitalization, Other)
  Sender: FDA-Public Use
  Company Number: FR-PIRAMAL CRITICAL CARE LIMITED-2022-PEL-000553

PATIENT

DRUGS (4)
  1. SEVOFLURANE [Suspect]
     Active Substance: SEVOFLURANE
     Indication: Anaesthesia
     Dosage: UNK
     Route: 065
     Dates: start: 20210226, end: 20210226
  2. PROPOFOL [Suspect]
     Active Substance: PROPOFOL
     Indication: Anaesthesia
     Route: 065
     Dates: start: 20210226, end: 20210226
  3. AMOXICILLINE                       /00249601/ [Concomitant]
     Indication: Product used for unknown indication
     Dosage: 1500 MILLIGRAM, QD
     Route: 065
  4. KLIPAL                             /00116401/ [Concomitant]
     Indication: Product used for unknown indication
     Dosage: 1 DOSAGE FORM
     Route: 065

REACTIONS (4)
  - Behaviour disorder [Recovering/Resolving]
  - Myoclonus [Recovered/Resolved]
  - Suicide attempt [Recovered/Resolved]
  - Confusional state [Recovering/Resolving]

NARRATIVE: CASE EVENT DATE: 20210226
